FAERS Safety Report 5098804-8 (Version None)
Quarter: 2006Q3

REPORT INFORMATION
  Report Type: 
  Country: None (occurrence: None)
  Receive Date: 20060905
  Receipt Date: 20060818
  Transmission Date: 20061208
  Serious: Yes (Other)
  Sender: FDA-Public Use
  Company Number: 2006-183

PATIENT
  Age: 42 Year
  Sex: Female

DRUGS (2)
  1. CITALOPRAM HYDROBROMIDE [Suspect]
     Indication: BIPOLAR DISORDER
     Dosage: 40 MG,
  2. QUETIAPINE [Suspect]
     Indication: BIPOLAR DISORDER
     Dosage: 800 MG,

REACTIONS (9)
  - AGITATION [None]
  - BLOOD CREATINE PHOSPHOKINASE INCREASED [None]
  - DEHYDRATION [None]
  - DELIRIUM [None]
  - FEELING ABNORMAL [None]
  - HYPERREFLEXIA [None]
  - MUSCLE RIGIDITY [None]
  - SEROTONIN SYNDROME [None]
  - URINARY INCONTINENCE [None]
